FAERS Safety Report 17262401 (Version 1)
Quarter: 2020Q1

REPORT INFORMATION
  Report Type: Spontaneous
  Country: US (occurrence: US)
  Receive Date: 20200113
  Receipt Date: 20200113
  Transmission Date: 20200409
  Serious: No
  Sender: FDA-Public Use
  Company Number: US-PFIZER INC-2020009875

PATIENT
  Age: 82 Year
  Sex: Female

DRUGS (2)
  1. ADVIL ALLERGY SINUS [Suspect]
     Active Substance: CHLORPHENIRAMINE MALEATE\IBUPROFEN\PSEUDOEPHEDRINE HYDROCHLORIDE
     Dosage: UNK
  2. ADVIL [Suspect]
     Active Substance: IBUPROFEN
     Dosage: UNK

REACTIONS (6)
  - Dyskinesia [Unknown]
  - Pain in extremity [Unknown]
  - Heart rate increased [Unknown]
  - Dizziness [Unknown]
  - Limb injury [Unknown]
  - Peripheral swelling [Unknown]
